FAERS Safety Report 4507067-0 (Version None)
Quarter: 2004Q4

REPORT INFORMATION
  Report Type: 
  Country: None (occurrence: None)
  Receive Date: 20041117
  Receipt Date: 20041103
  Transmission Date: 20050328
  Serious: Yes (Hospitalization)
  Sender: FDA-Public Use
  Company Number: 2004-0007715

PATIENT
  Age: 26 Year
  Sex: Female
  Weight: 62 kg

DRUGS (3)
  1. VIREAD [Suspect]
     Indication: HIV INFECTION
     Dates: start: 20020601, end: 20021101
  2. D4T (STAVUDINE) [Suspect]
     Indication: HIV INFECTION
     Dates: start: 20020601, end: 20021101
  3. DDI (DIDANOSINE) [Suspect]
     Indication: HIV INFECTION
     Dates: start: 20020601, end: 20021101

REACTIONS (7)
  - AMENORRHOEA [None]
  - DYSPNOEA AT REST [None]
  - HAEMODIALYSIS [None]
  - HEPATOTOXICITY [None]
  - LACTIC ACIDOSIS [None]
  - MITOCHONDRIAL TOXICITY [None]
  - WEIGHT INCREASED [None]
